FAERS Safety Report 7378874-4 (Version None)
Quarter: 2011Q1

REPORT INFORMATION
  Report Type: 
  Country: None (occurrence: None)
  Receive Date: 20110328
  Receipt Date: 20110322
  Transmission Date: 20110831
  Serious: Yes (Death)
  Sender: FDA-Public Use
  Company Number: PHHY2011US20948

PATIENT
  Sex: Male
  Weight: 69 kg

DRUGS (6)
  1. NAMENDA [Concomitant]
     Indication: DEMENTIA ALZHEIMER'S TYPE
     Dosage: 10 MG, BID
     Route: 048
     Dates: start: 20060101, end: 20110112
  2. FISTOIL [Concomitant]
     Indication: MEDICAL DIET
     Route: 048
  3. LISINOPRIL [Concomitant]
     Indication: HYPERTENSION
     Dosage: 5 MG, QD
     Route: 048
     Dates: start: 20050101, end: 20110112
  4. ACTONEL [Concomitant]
     Indication: OSTEOPOROSIS
     Dosage: 35 MG, UNK
     Route: 048
     Dates: start: 20050101, end: 20110112
  5. ASPIRIN [Concomitant]
     Indication: PROPHYLAXIS
     Dosage: 81 MG, QD
     Route: 048
     Dates: start: 20050101, end: 20110112
  6. EXELON [Suspect]
     Dosage: UNK
     Route: 062

REACTIONS (1)
  - RENAL FAILURE [None]
